FAERS Safety Report 9111128 (Version 1)
Quarter: 2013Q1

REPORT INFORMATION
  Report Type: Spontaneous
  Country: US (occurrence: US)
  Receive Date: 20130219
  Receipt Date: 20130219
  Transmission Date: 20140127
  Serious: No
  Sender: FDA-Public Use
  Company Number: US-BRISTOL-MYERS SQUIBB COMPANY-17184037

PATIENT
  Age: 75 Year
  Sex: Female

DRUGS (2)
  1. ORENCIA [Suspect]
     Dosage: LAST INF: 27NOV2012
     Route: 042
  2. REMICADE [Suspect]

REACTIONS (2)
  - Drug ineffective [Unknown]
  - Bacterial infection [Unknown]
